FAERS Safety Report 6594692-9 (Version None)
Quarter: 2010Q1

REPORT INFORMATION
  Report Type: 
  Country: None (occurrence: None)
  Receive Date: 20100222
  Receipt Date: 20100218
  Transmission Date: 20100710
  Serious: Yes (Hospitalization, Other)
  Sender: FDA-Public Use
  Company Number: DK-SANOFI-AVENTIS-2010SA009552

PATIENT
  Age: 89 Year
  Sex: Female

DRUGS (1)
  1. AMARYL [Suspect]
     Dosage: 1 MILLIGRAM(S)
     Route: 048
     Dates: end: 20100127

REACTIONS (1)
  - ALTERED STATE OF CONSCIOUSNESS [None]
